FAERS Safety Report 23834781 (Version 2)
Quarter: 2025Q3

REPORT INFORMATION
  Report Type: Report from Study
  Country: US (occurrence: US)
  Receive Date: 20240509
  Receipt Date: 20250725
  Transmission Date: 20251020
  Serious: Yes (Other)
  Sender: ROCHE
  Company Number: US-ROCHE-3533744

PATIENT
  Age: 86 Year
  Sex: Female

DRUGS (2)
  1. ERIVEDGE [Suspect]
     Active Substance: VISMODEGIB
     Indication: Basal cell carcinoma
     Route: 048
  2. ERIVEDGE [Suspect]
     Active Substance: VISMODEGIB
     Indication: Basal cell carcinoma

REACTIONS (3)
  - Muscle spasms [Unknown]
  - Condition aggravated [Unknown]
  - Parkinson^s disease [Unknown]
